FAERS Safety Report 8217835-X (Version None)
Quarter: 2012Q1

REPORT INFORMATION
  Report Type: 
  Country: None (occurrence: None)
  Receive Date: 20120319
  Receipt Date: 20120313
  Transmission Date: 20120608
  Serious: Yes (Other)
  Sender: FDA-Public Use
  Company Number: US-JNJFOC-20120307031

PATIENT
  Age: 6 Year
  Sex: Female

DRUGS (1)
  1. CHILDREN'S SUDAFED PE COLD AND COUGH [Suspect]
     Indication: NASOPHARYNGITIS
     Route: 048
     Dates: start: 20120201, end: 20120313

REACTIONS (2)
  - HEART RATE INCREASED [None]
  - PALPITATIONS [None]
